FAERS Safety Report 12524080 (Version 1)
Quarter: 2016Q3

REPORT INFORMATION
  Report Type: Spontaneous
  Country: CN (occurrence: CN)
  Receive Date: 20160704
  Receipt Date: 20160704
  Transmission Date: 20161109
  Serious: Yes (Hospitalization)
  Sender: FDA-Public Use
  Company Number: CN-ROCHE-1787497

PATIENT
  Sex: Male

DRUGS (6)
  1. 5-FLUOROURACIL [Concomitant]
     Active Substance: FLUOROURACIL
     Indication: RECTAL CANCER
     Dosage: FOLFOX REGIMEN
     Route: 065
  2. OXALIPLATIN. [Concomitant]
     Active Substance: OXALIPLATIN
     Indication: RECTAL CANCER
     Dosage: FOLFOX REGIMEN
     Route: 065
  3. AVASTIN [Suspect]
     Active Substance: BEVACIZUMAB
     Dosage: DOSE: 300 MG
     Route: 041
     Dates: start: 20160529, end: 20160529
  4. AVASTIN [Suspect]
     Active Substance: BEVACIZUMAB
     Dosage: DOSE: 300 MG
     Route: 041
     Dates: start: 20160628, end: 20160628
  5. AVASTIN [Suspect]
     Active Substance: BEVACIZUMAB
     Indication: RECTAL CANCER
     Dosage: DOSE: 300 MG
     Route: 041
     Dates: start: 20160513, end: 20160513
  6. FOLINIC ACID [Concomitant]
     Active Substance: LEUCOVORIN
     Indication: RECTAL CANCER
     Dosage: FOLFOX REGIMEN
     Route: 065

REACTIONS (2)
  - Shock [Unknown]
  - Rectal haemorrhage [Recovering/Resolving]

NARRATIVE: CASE EVENT DATE: 20160629
